FAERS Safety Report 9392924 (Version 1)
Quarter: 2013Q3

REPORT INFORMATION
  Report Type: Spontaneous
  Country: US (occurrence: US)
  Receive Date: 20130710
  Receipt Date: 20130710
  Transmission Date: 20140515
  Serious: No
  Sender: FDA-Public Use
  Company Number: US-PFIZER INC-2013200221

PATIENT
  Age: 51 Year
  Sex: Female
  Weight: 62.13 kg

DRUGS (2)
  1. LYRICA [Suspect]
     Indication: FIBROMYALGIA
     Dosage: 150 MG, 3X/DAY
     Dates: start: 2007
  2. HYDROCODONE [Concomitant]
     Dosage: UNK

REACTIONS (4)
  - Stress [Unknown]
  - Pain [Unknown]
  - Crying [Unknown]
  - Feeling abnormal [Unknown]
